FAERS Safety Report 19570949 (Version 1)
Quarter: 2021Q3

REPORT INFORMATION
  Report Type: Other
  Country: US (occurrence: US)
  Receive Date: 20210716
  Receipt Date: 20210716
  Transmission Date: 20211014
  Serious: No
  Sender: FDA-Public Use
  Company Number: US-UROVANT SCIENCES GMBH-202105-URV-000211

PATIENT
  Sex: Male

DRUGS (1)
  1. GEMTESA [Suspect]
     Active Substance: VIBEGRON
     Indication: POLLAKIURIA
     Dosage: 75 MG, QD
     Route: 048
     Dates: start: 20210526

REACTIONS (3)
  - Constipation [Unknown]
  - Dysphagia [Unknown]
  - Foreign body in throat [Unknown]
